FAERS Safety Report 13413129 (Version 3)
Quarter: 2025Q4

REPORT INFORMATION
  Report Type: Spontaneous
  Country: US (occurrence: US)
  Receive Date: 20170406
  Receipt Date: 20251231
  Transmission Date: 20260118
  Serious: No
  Sender: JOHNSON AND JOHNSON
  Company Number: US-JNJFOC-20170310927

PATIENT
  Sex: Male

DRUGS (15)
  1. RISPERDAL [Suspect]
     Active Substance: RISPERIDONE
     Indication: Psychomotor hyperactivity
     Dosage: VARYING DOSES OF 01 MG AND 02 MG AND VARYING FREQUENCIES
     Route: 048
     Dates: start: 19990920, end: 20080929
  2. RISPERDAL [Suspect]
     Active Substance: RISPERIDONE
     Indication: Impulsive behaviour
     Route: 048
     Dates: start: 20091019
  3. RISPERDAL [Suspect]
     Active Substance: RISPERIDONE
     Indication: Disturbance in attention
     Dosage: VARYING DOSES OF UNSPECIFIED DOSE AND 02 MG VARYING FREQUENCIES INCLUDED (UNSPECIFIED DOSE AND BID)
     Route: 048
     Dates: start: 20100809, end: 20101204
  4. RISPERDAL [Suspect]
     Active Substance: RISPERIDONE
     Indication: Attention deficit hyperactivity disorder
     Dosage: VARYING DOSES OF UNSPECIFIED DOSE AND 02 MG VARYING FREQUENCIES INCLUDED (UNSPECIFIED DOSE AND BID)
     Route: 048
     Dates: start: 20110701, end: 20110713
  5. RISPERDAL [Suspect]
     Active Substance: RISPERIDONE
     Dosage: VARYING DOSES OF 1 MG AND 2 MG
     Route: 048
     Dates: start: 2011, end: 2011
  6. RISPERDAL [Suspect]
     Active Substance: RISPERIDONE
     Dosage: VARYING FREQUENCIES NOTED(HALF EVERY MORNING (QAM) AND ONE EVERY HOUR OF SLEEP (QHS)/ ONE EVERY QHS)
     Route: 048
     Dates: start: 20111216, end: 20120127
  7. RISPERIDONE [Suspect]
     Active Substance: RISPERIDONE
     Indication: Psychomotor hyperactivity
     Route: 048
  8. RISPERIDONE [Suspect]
     Active Substance: RISPERIDONE
     Indication: Impulsive behaviour
     Route: 048
  9. RISPERIDONE [Suspect]
     Active Substance: RISPERIDONE
     Indication: Disturbance in attention
     Route: 048
  10. RISPERIDONE [Suspect]
     Active Substance: RISPERIDONE
     Indication: Psychomotor hyperactivity
  11. RISPERIDONE [Suspect]
     Active Substance: RISPERIDONE
     Indication: Impulsive behaviour
  12. RISPERIDONE [Suspect]
     Active Substance: RISPERIDONE
     Indication: Disturbance in attention
     Dates: start: 20090512, end: 20090918
  13. RISPERIDONE [Suspect]
     Active Substance: RISPERIDONE
     Dosage: VARYING DOSES OF 01 MG AND 02 MG
     Dates: start: 20091117, end: 20100717
  14. RISPERIDONE [Suspect]
     Active Substance: RISPERIDONE
     Dates: start: 20110114, end: 20110529
  15. RISPERIDONE [Suspect]
     Active Substance: RISPERIDONE
     Dates: start: 20110812, end: 20111117

REACTIONS (2)
  - Emotional disorder [Unknown]
  - Gynaecomastia [Unknown]
